FAERS Safety Report 24306355 (Version 1)
Quarter: 2024Q3

REPORT INFORMATION
  Report Type: Spontaneous
  Country: US (occurrence: US)
  Receive Date: 20240911
  Receipt Date: 20240911
  Transmission Date: 20241017
  Serious: No
  Sender: LEO PHARM
  Company Number: US-LEO Pharma-373377

PATIENT
  Age: 29 Year
  Sex: Female

DRUGS (1)
  1. ADBRY [Suspect]
     Active Substance: TRALOKINUMAB-LDRM
     Indication: Dermatitis atopic
     Dosage: TREATMENT REPORTED AS ONGOING
     Route: 058
     Dates: start: 202405

REACTIONS (4)
  - Urticaria [Unknown]
  - Injection site swelling [Unknown]
  - Circumstance or information capable of leading to medication error [Unknown]
  - Syringe issue [Unknown]
